FAERS Safety Report 9695743 (Version 1)
Quarter: 2013Q4

REPORT INFORMATION
  Report Type: Spontaneous
  Country: US (occurrence: None)
  Receive Date: 20131118
  Receipt Date: 20131118
  Transmission Date: 20140711
  Serious: No
  Sender: FDA-Public Use
  Company Number: None

PATIENT
  Age: 63 Year
  Sex: Male
  Weight: 95.26 kg

DRUGS (1)
  1. LYRICA [Suspect]
     Indication: PAIN
     Route: 048

REACTIONS (4)
  - Abnormal behaviour [None]
  - Fear [None]
  - Insomnia [None]
  - Feeling abnormal [None]
